FAERS Safety Report 6731398-7 (Version None)
Quarter: 2010Q2

REPORT INFORMATION
  Report Type: 
  Country: None (occurrence: None)
  Receive Date: 20100518
  Receipt Date: 20100518
  Transmission Date: 20101027
  Serious: No
  Sender: FDA-Public Use
  Company Number: None

PATIENT
  Age: 62 Year
  Sex: Male
  Weight: 93.08 kg

DRUGS (1)
  1. AZACITIDINE [Suspect]
     Indication: MYELODYSPLASTIC SYNDROME
     Dosage: 150 MG EVERY DAY IV
     Route: 042
     Dates: start: 20091102, end: 20100406

REACTIONS (2)
  - CHILLS [None]
  - CONFUSIONAL STATE [None]
